FAERS Safety Report 8961430 (Version 2)
Quarter: 2012Q4

REPORT INFORMATION
  Report Type: Report from Study
  Country: CA (occurrence: CA)
  Receive Date: 20121213
  Receipt Date: 20121218
  Transmission Date: 20130627
  Serious: Yes (Hospitalization, Other)
  Sender: FDA-Public Use
  Company Number: CA-JNJFOC-20121200771

PATIENT
  Age: 62 None
  Sex: Female
  Weight: 76 kg

DRUGS (4)
  1. REMICADE [Suspect]
     Indication: CROHN^S DISEASE
     Dosage: week 0, 2, 6 and then every 8 weeks
     Route: 042
     Dates: start: 20120611, end: 20121112
  2. CALCIUM [Concomitant]
  3. VITAMIN D [Concomitant]
     Route: 065
  4. PANTOLOC [Concomitant]
     Route: 065

REACTIONS (3)
  - Systemic lupus erythematosus [Unknown]
  - Back pain [Not Recovered/Not Resolved]
  - Myalgia [Not Recovered/Not Resolved]
